FAERS Safety Report 7245870-7 (Version None)
Quarter: 2011Q1

REPORT INFORMATION
  Report Type: 
  Country: None (occurrence: None)
  Receive Date: 20110126
  Receipt Date: 20110113
  Transmission Date: 20110831
  Serious: Yes (Hospitalization, Other)
  Sender: FDA-Public Use
  Company Number: US-ELI_LILLY_AND_COMPANY-US201012003332

PATIENT
  Age: 15 Year
  Sex: Male

DRUGS (2)
  1. CYMBALTA [Suspect]
     Dosage: UNK, UNKNOWN
     Route: 065
  2. CYMBALTA [Suspect]
     Indication: DEPRESSION
     Dosage: UNK, DAILY (1/D)
     Route: 065

REACTIONS (4)
  - HOMICIDE [None]
  - INTENTIONAL OVERDOSE [None]
  - ADVERSE EVENT [None]
  - OFF LABEL USE [None]
